FAERS Safety Report 6482450-5 (Version None)
Quarter: 2009Q4

REPORT INFORMATION
  Report Type: 
  Country: None (occurrence: None)
  Receive Date: 20091208
  Receipt Date: 20091026
  Transmission Date: 20100525
  Serious: No
  Sender: FDA-Public Use
  Company Number: US-AMGEN-TCS366386

PATIENT
  Sex: Female
  Weight: 24.6 kg

DRUGS (3)
  1. ENBREL [Suspect]
     Indication: JUVENILE ARTHRITIS
     Route: 058
     Dates: start: 20090617
  2. NAPROXEN [Concomitant]
  3. MULTI-VITAMINS [Concomitant]

REACTIONS (3)
  - GASTROENTERITIS VIRAL [None]
  - IMPAIRED HEALING [None]
  - UPPER RESPIRATORY TRACT INFECTION [None]
